FAERS Safety Report 6013133-3 (Version None)
Quarter: 2008Q4

REPORT INFORMATION
  Report Type: 
  Country: None (occurrence: None)
  Receive Date: 20081219
  Receipt Date: 20081211
  Transmission Date: 20090506
  Serious: Yes (Hospitalization)
  Sender: FDA-Public Use
  Company Number: DE-BIOGENIDEC-2008BI029292

PATIENT
  Age: 43 Year
  Sex: Female
  Weight: 70 kg

DRUGS (1)
  1. TYSABRI [Suspect]
     Indication: RELAPSING-REMITTING MULTIPLE SCLEROSIS
     Route: 042
     Dates: start: 20080306, end: 20080812

REACTIONS (3)
  - MULTIPLE SCLEROSIS [None]
  - NEUTRALISING ANTIBODIES POSITIVE [None]
  - SECONDARY PROGRESSIVE MULTIPLE SCLEROSIS [None]
